FAERS Safety Report 7534138-7 (Version None)
Quarter: 2011Q2

REPORT INFORMATION
  Report Type: 
  Country: None (occurrence: None)
  Receive Date: 20110608
  Receipt Date: 20061108
  Transmission Date: 20111010
  Serious: Yes (Other)
  Sender: FDA-Public Use
  Company Number: PHFR2006GB03380

PATIENT
  Sex: Female

DRUGS (2)
  1. HALOPERIDOL [Concomitant]
     Route: 065
  2. CLOZAPINE [Suspect]
     Indication: SCHIZOPHRENIA
     Route: 048
     Dates: start: 19980324

REACTIONS (5)
  - CONTUSION [None]
  - BLOOD PRESSURE SYSTOLIC INCREASED [None]
  - ABNORMAL BEHAVIOUR [None]
  - BLOOD CREATINE PHOSPHOKINASE INCREASED [None]
  - ABDOMINAL DISTENSION [None]
